FAERS Safety Report 11719305 (Version 1)
Quarter: 2015Q4

REPORT INFORMATION
  Report Type: Spontaneous
  Country: US (occurrence: None)
  Receive Date: 20151109
  Receipt Date: 20151109
  Transmission Date: 20160304
  Serious: Yes (Other)
  Sender: FDA-Public Use
  Company Number: None

PATIENT
  Age: 25 Year
  Sex: Female
  Weight: 61.24 kg

DRUGS (1)
  1. MONISTAT 1 COMBINATION PACK [Suspect]
     Active Substance: MICONAZOLE NITRATE
     Indication: VULVOVAGINAL MYCOTIC INFECTION
     Dates: start: 20151106, end: 20151107

REACTIONS (3)
  - Vulvovaginal swelling [None]
  - Vulval ulceration [None]
  - Vulvovaginal burning sensation [None]

NARRATIVE: CASE EVENT DATE: 20151107
